FAERS Safety Report 5431068-1 (Version None)
Quarter: 2007Q3

REPORT INFORMATION
  Report Type: 
  Country: None (occurrence: None)
  Receive Date: 20070830
  Receipt Date: 20070201
  Transmission Date: 20080115
  Serious: No
  Sender: FDA-Public Use
  Company Number: A0637960A

PATIENT
  Age: 38 Year
  Sex: Male

DRUGS (2)
  1. WELLBUTRIN XL [Suspect]
     Indication: DRUG USE FOR UNKNOWN INDICATION
     Dosage: 150MG TWICE PER DAY
     Route: 048
  2. NO CONCURRENT MEDICATION [Concomitant]

REACTIONS (5)
  - ANXIETY [None]
  - CHILLS [None]
  - HYPOAESTHESIA [None]
  - INSOMNIA [None]
  - PHARYNGOLARYNGEAL PAIN [None]
